FAERS Safety Report 25199895 (Version 2)
Quarter: 2025Q3

REPORT INFORMATION
  Report Type: Spontaneous
  Country: JP (occurrence: JP)
  Receive Date: 20250415
  Receipt Date: 20250809
  Transmission Date: 20251021
  Serious: Yes (Other)
  Sender: ALEXION PHARMACEUTICALS
  Company Number: JP-ASTRAZENECA-250034778_013120_P_1

PATIENT
  Age: 62 Year
  Sex: Male

DRUGS (3)
  1. DURVALUMAB [Suspect]
     Active Substance: DURVALUMAB
     Indication: Small cell lung cancer
     Dosage: 1500 MILLIGRAM, Q3W
  2. CARBOPLATIN [Concomitant]
     Active Substance: CARBOPLATIN
     Indication: Small cell lung cancer
     Route: 065
  3. ETOPOSIDE [Concomitant]
     Active Substance: ETOPOSIDE
     Indication: Small cell lung cancer
     Route: 065

REACTIONS (6)
  - Immune-mediated hypophysitis [Recovering/Resolving]
  - Interstitial lung disease [Unknown]
  - Immune-mediated arthritis [Unknown]
  - Metastases to spine [Unknown]
  - Metastases to lymph nodes [Unknown]
  - Metastases to central nervous system [Unknown]
